FAERS Safety Report 8137963-7 (Version None)
Quarter: 2012Q1

REPORT INFORMATION
  Report Type: 
  Country: None (occurrence: None)
  Receive Date: 20120215
  Receipt Date: 20120213
  Transmission Date: 20120608
  Serious: Yes (Other)
  Sender: FDA-Public Use
  Company Number: US-AMGEN-USASP2012009511

PATIENT

DRUGS (5)
  1. DACARBAZINE [Concomitant]
     Indication: HODGKIN'S DISEASE
     Dosage: UNK
  2. NEUPOGEN [Suspect]
     Indication: NEUTROPENIA
  3. BLEOMYCIN [Concomitant]
     Indication: HODGKIN'S DISEASE
  4. VINBLASTINE SULFATE [Concomitant]
     Indication: HODGKIN'S DISEASE
  5. DOXORUBICIN HCL [Concomitant]
     Indication: HODGKIN'S DISEASE

REACTIONS (1)
  - NEUTROPENIA [None]
